FAERS Safety Report 13272165 (Version 3)
Quarter: 2017Q2

REPORT INFORMATION
  Report Type: Report from Study
  Country: US (occurrence: US)
  Receive Date: 20170227
  Receipt Date: 20170608
  Transmission Date: 20170830
  Serious: Yes (Other)
  Sender: FDA-Public Use
  Company Number: US-ALEXION PHARMACEUTICALS INC.-A201701647

PATIENT
  Sex: Female

DRUGS (2)
  1. STRENSIQ [Suspect]
     Active Substance: ASFOTASE ALFA
     Indication: HYPOPHOSPHATASIA
     Dosage: 136 MG, QD
     Route: 058
  2. STRENSIQ [Suspect]
     Active Substance: ASFOTASE ALFA
     Dosage: 80 MG, TIW
     Route: 058
     Dates: start: 20170508

REACTIONS (11)
  - Violence-related symptom [Unknown]
  - Blood alkaline phosphatase abnormal [Unknown]
  - Trichotillomania [Unknown]
  - Stress [Unknown]
  - Malaise [Unknown]
  - Pain [Unknown]
  - Apathy [Unknown]
  - Suicidal ideation [Unknown]
  - Fatigue [Unknown]
  - Drug prescribing error [Not Recovered/Not Resolved]
  - Self-injurious ideation [Unknown]

NARRATIVE: CASE EVENT DATE: 20170216
